FAERS Safety Report 16801651 (Version 1)
Quarter: 2019Q3

REPORT INFORMATION
  Report Type: Spontaneous
  Country: JP (occurrence: JP)
  Receive Date: 20190912
  Receipt Date: 20190912
  Transmission Date: 20191005
  Serious: Yes (Hospitalization, Other)
  Sender: FDA-Public Use
  Company Number: JP-GLAXOSMITHKLINE-JP2019JPN155626

PATIENT
  Age: 87 Year
  Sex: Female

DRUGS (9)
  1. OLOPATADINE. [Concomitant]
     Active Substance: OLOPATADINE
     Dosage: 5 MG, BID
  2. LUNESTA [Concomitant]
     Active Substance: ESZOPICLONE
     Dosage: UNK,BEFORE BEDTIME
  3. IMIDAPRIL HYDROCHLORIDE [Concomitant]
     Active Substance: IMIDAPRIL HYDROCHLORIDE
     Dosage: UNK MG, UNK
  4. SAMTIREL [Suspect]
     Active Substance: ATOVAQUONE
     Indication: ANTIFUNGAL PROPHYLAXIS
     Dosage: 1 DF, BID
     Route: 048
  5. RISEDRONATE SODIUM. [Concomitant]
     Active Substance: RISEDRONATE SODIUM
     Dosage: UNK MG, UNK
  6. CALCIUM PANTOTHENATE [Concomitant]
     Active Substance: CALCIUM PANTOTHENATE
     Dosage: 100 MG, BID
  7. MAGMITT [Concomitant]
     Active Substance: MAGNESIUM OXIDE
     Dosage: 500 MG, TID
  8. CALONAL [Concomitant]
     Active Substance: ACETAMINOPHEN
     Dosage: UNK UNK, PRN
  9. NEXIUM [Concomitant]
     Active Substance: ESOMEPRAZOLE MAGNESIUM
     Dosage: UNK MG, UNK

REACTIONS (3)
  - Haematological malignancy [Unknown]
  - Product use issue [Unknown]
  - Buccal mucosal roughening [Recovering/Resolving]
